FAERS Safety Report 16788993 (Version 2)
Quarter: 2019Q3

REPORT INFORMATION
  Report Type: Report from Study
  Country: GR (occurrence: GR)
  Receive Date: 20190910
  Receipt Date: 20190923
  Transmission Date: 20191005
  Serious: Yes (Hospitalization, Other)
  Sender: FDA-Public Use
  Company Number: GR-GLAXOSMITHKLINE-GR2019GSK107555

PATIENT
  Age: 72 Year
  Sex: Male
  Weight: 88 kg

DRUGS (6)
  1. BLINDED DAPRODUSTAT [Suspect]
     Active Substance: DAPRODUSTAT
     Indication: NEPHROGENIC ANAEMIA
     Dosage: UNK
     Dates: start: 20180516
  2. CUBICIN [Suspect]
     Active Substance: DAPTOMYCIN
     Indication: FEBRILE INFECTION
     Dosage: 500 MG, UNK
     Route: 042
     Dates: start: 20190610, end: 20190624
  3. APIDRA [Concomitant]
     Active Substance: INSULIN GLULISINE
     Indication: DIABETES MELLITUS
     Dosage: UNK
     Route: 058
     Dates: start: 20190610
  4. CUBICIN [Suspect]
     Active Substance: DAPTOMYCIN
     Indication: SKIN ULCER
  5. BLINDED DARBEPOETIN ALFA [Suspect]
     Active Substance: DARBEPOETIN ALFA
     Indication: NEPHROGENIC ANAEMIA
     Dosage: UNK
     Dates: start: 20180516
  6. BLINDED DARBEPOETIN ALFA [Suspect]
     Active Substance: DARBEPOETIN ALFA
     Indication: NEPHROGENIC ANAEMIA
     Dosage: UNK
     Dates: start: 20180516

REACTIONS (1)
  - Cellulitis [Recovered/Resolved]

NARRATIVE: CASE EVENT DATE: 20190606
